FAERS Safety Report 13114412 (Version 3)
Quarter: 2017Q2

REPORT INFORMATION
  Report Type: Report from Study
  Country: CO (occurrence: CO)
  Receive Date: 20170113
  Receipt Date: 20170504
  Transmission Date: 20170830
  Serious: Yes (Other)
  Sender: FDA-Public Use
  Company Number: CO-SA-2017SA006338

PATIENT
  Age: 19 Year
  Sex: Male

DRUGS (1)
  1. LEMTRADA [Suspect]
     Active Substance: ALEMTUZUMAB
     Indication: MULTIPLE SCLEROSIS
     Route: 041
     Dates: start: 20160615, end: 20160620

REACTIONS (9)
  - Monocyte count decreased [Recovered/Resolved]
  - Eosinophilia [Not Recovered/Not Resolved]
  - Haematocrit increased [Unknown]
  - Monocyte percentage increased [Not Recovered/Not Resolved]
  - Lymphocytosis [Not Recovered/Not Resolved]
  - White blood cell count decreased [Not Recovered/Not Resolved]
  - Neutropenia [Not Recovered/Not Resolved]
  - Mean platelet volume increased [Not Recovered/Not Resolved]
  - Rash [Unknown]

NARRATIVE: CASE EVENT DATE: 20160618
